FAERS Safety Report 10258156 (Version 1)
Quarter: 2014Q2

REPORT INFORMATION
  Report Type: Spontaneous
  Country: US (occurrence: US)
  Receive Date: 20140625
  Receipt Date: 20140625
  Transmission Date: 20141212
  Serious: No
  Sender: FDA-Public Use
  Company Number: US-PFIZER INC-2014171631

PATIENT
  Age: 56 Year
  Sex: Female

DRUGS (2)
  1. ENBREL [Suspect]
     Indication: RHEUMATOID ARTHRITIS
     Dosage: 50 MG, WEEKLY
     Dates: start: 20120105, end: 2013
  2. XELJANZ [Suspect]
     Dosage: UNK
     Dates: start: 2013, end: 2013

REACTIONS (4)
  - Arthralgia [Recovered/Resolved]
  - Respiratory disorder [Recovered/Resolved]
  - Decreased immune responsiveness [Not Recovered/Not Resolved]
  - Herpes zoster [Recovered/Resolved]
